FAERS Safety Report 26076275 (Version 1)
Quarter: 2025Q4

REPORT INFORMATION
  Report Type: Spontaneous
  Country: US (occurrence: US)
  Receive Date: 20251121
  Receipt Date: 20251121
  Transmission Date: 20260118
  Serious: No
  Sender: TAIHO ONCOLOGY INC
  Company Number: US-TAIHOP-2025-012354

PATIENT
  Sex: Female

DRUGS (1)
  1. LYTGOBI [Suspect]
     Active Substance: FUTIBATINIB
     Indication: Product used for unknown indication
     Route: 048

REACTIONS (4)
  - Nail infection [Unknown]
  - Onychomadesis [Unknown]
  - Inflammation [Unknown]
  - Impaired quality of life [Unknown]
